FAERS Safety Report 8477636-4 (Version None)
Quarter: 2012Q2

REPORT INFORMATION
  Report Type: 
  Country: None (occurrence: None)
  Receive Date: 20120618
  Receipt Date: 20120611
  Transmission Date: 20120825
  Serious: Yes (Hospitalization)
  Sender: FDA-Public Use
  Company Number: 7139333

PATIENT
  Age: 2 Year
  Sex: Male

DRUGS (1)
  1. LEVOTHYROXINE SODIUM [Suspect]
     Indication: ACCIDENTAL DRUG INTAKE BY CHILD
     Dosage: (50 MG,ONCE) ORAL
     Route: 048
     Dates: start: 20120609, end: 20120609

REACTIONS (2)
  - CARDIAC ENZYMES INCREASED [None]
  - ACCIDENTAL DRUG INTAKE BY CHILD [None]
